FAERS Safety Report 15362716 (Version 1)
Quarter: 2018Q3

REPORT INFORMATION
  Report Type: Spontaneous
  Country: YE (occurrence: YE)
  Receive Date: 20180831
  Receipt Date: 20180831
  Transmission Date: 20181010
  Serious: Yes (Life-Threatening, Hospitalization)
  Sender: FDA-Public Use
  Company Number: None

PATIENT
  Age: 85 Year
  Sex: Female
  Weight: 82.55 kg

DRUGS (4)
  1. VALSARTAN HCTZ 80?12.5MG TAB [Suspect]
     Active Substance: HYDROCHLOROTHIAZIDE\VALSARTAN
     Indication: BLOOD PRESSURE MEASUREMENT
     Dosage: ?          QUANTITY:1 DF DOSAGE FORM;?
     Route: 048
     Dates: start: 2016, end: 20180720
  2. ASPIRIN. [Concomitant]
     Active Substance: ASPIRIN
  3. ADVIL [Concomitant]
     Active Substance: IBUPROFEN
  4. DIOVAN [Concomitant]
     Active Substance: VALSARTAN

REACTIONS (4)
  - Syncope [None]
  - Rash [None]
  - Asthenia [None]
  - Dizziness [None]

NARRATIVE: CASE EVENT DATE: 20171015
